FAERS Safety Report 9137766 (Version 1)
Quarter: 2013Q1

REPORT INFORMATION
  Report Type: Spontaneous
  Country: US (occurrence: US)
  Receive Date: 20130304
  Receipt Date: 20130304
  Transmission Date: 20140127
  Serious: No
  Sender: FDA-Public Use
  Company Number: US-ABBOTT-12P-163-0947575-00

PATIENT
  Sex: Male

DRUGS (4)
  1. ANDROGEL [Suspect]
     Indication: BLOOD TESTOSTERONE DECREASED
     Dates: start: 201203, end: 201203
  2. ANDROGEL [Suspect]
     Dates: start: 20120523
  3. LOSARTAN HCT [Concomitant]
     Indication: HYPERTENSION
  4. HCTZ [Concomitant]
     Indication: HYPERTENSION

REACTIONS (5)
  - Abdominal distension [Recovered/Resolved]
  - Muscle tightness [Recovered/Resolved]
  - Headache [Not Recovered/Not Resolved]
  - Abdominal distension [Not Recovered/Not Resolved]
  - Muscle tightness [Not Recovered/Not Resolved]
